FAERS Safety Report 8593387-X (Version None)
Quarter: 2012Q3

REPORT INFORMATION
  Report Type: 
  Country: None (occurrence: None)
  Receive Date: 20120814
  Receipt Date: 20120808
  Transmission Date: 20120928
  Serious: Yes (Other)
  Sender: FDA-Public Use
  Company Number: PHHY2012BR068917

PATIENT
  Sex: Female

DRUGS (1)
  1. ONBREZ [Suspect]
     Indication: ASTHMA
     Dosage: 1 DF, QD
     Dates: start: 20120201

REACTIONS (5)
  - DIZZINESS [None]
  - DIARRHOEA [None]
  - PAIN [None]
  - INFLUENZA [None]
  - ASTHMA [None]
